FAERS Safety Report 8767112 (Version 1)
Quarter: 2012Q4

REPORT INFORMATION
  Report Type: 
  Country: IT (occurrence: IT)
  Receive Date: 20120904
  Receipt Date: 20120904
  Transmission Date: 20130627
  Serious: Yes (Death, Other)
  Sender: FDA-Public Use
  Company Number: IT-JNJFOC-20120813801

PATIENT
  Age: 48 Year
  Sex: Female

DRUGS (8)
  1. DOXORUBICIN [Suspect]
     Indication: BREAST CANCER
     Dosage: on day 1 every 21 days, 12 cycles
     Route: 042
  2. LEUPROLIDE ACETATE [Suspect]
     Indication: PRODUCT USED FOR UNKNOWN INDICATION
     Route: 065
     Dates: start: 200303
  3. TAMOXIFEN CITRATE [Suspect]
     Indication: PRODUCT USED FOR UNKNOWN INDICATION
     Route: 065
     Dates: start: 200303
  4. GEMCITABINE [Suspect]
     Indication: BREAST CANCER
     Dosage: on days 1 and 8, every 21 days, 12 cycles
     Route: 065
  5. PACLITAXEL [Suspect]
     Indication: BREAST CANCER
     Route: 065
  6. EPIRUBICIN [Suspect]
     Indication: BREAST CANCER
     Route: 065
  7. DOCETAXEL [Suspect]
     Indication: BREAST CANCER
     Route: 065
  8. RADIATION THERAPY [Concomitant]
     Indication: BREAST CANCER
     Route: 065

REACTIONS (5)
  - Breast cancer [Fatal]
  - Erythema [Unknown]
  - Hepatic function abnormal [Unknown]
  - Leukopenia [Unknown]
  - Thrombocytopenia [Unknown]
